FAERS Safety Report 5904638-1 (Version None)
Quarter: 2008Q3

REPORT INFORMATION
  Report Type: 
  Country: None (occurrence: None)
  Receive Date: 20080909
  Receipt Date: 20071210
  Transmission Date: 20090109
  Serious: Yes (Hospitalization)
  Sender: FDA-Public Use
  Company Number: 163-20785-07101246

PATIENT
  Age: 49 Year
  Sex: Female

DRUGS (13)
  1. THALOMID [Suspect]
     Indication: MULTIPLE MYELOMA
     Dosage: 100 MG, 1 IN 1 D, ORAL ; 50 MG, DAILY, ORAL
     Route: 047
     Dates: start: 20071010, end: 20071018
  2. THALOMID [Suspect]
     Indication: MULTIPLE MYELOMA
     Dosage: 100 MG, 1 IN 1 D, ORAL ; 50 MG, DAILY, ORAL
     Route: 047
     Dates: start: 20071019
  3. LOVENOX [Concomitant]
  4. MORPHINE [Concomitant]
  5. LORAZEPAM [Concomitant]
  6. BUPROPION HCL [Concomitant]
  7. RANITIDINE [Concomitant]
  8. ESTRADIOL [Concomitant]
  9. MEDROXYPROGESTERONE [Concomitant]
  10. CASCARA (CASCARA) [Concomitant]
  11. SIMVASTATIN [Concomitant]
  12. WARFARIN SODIUM [Concomitant]
  13. CARAFATE [Concomitant]

REACTIONS (3)
  - CHEST PAIN [None]
  - HYPOAESTHESIA [None]
  - PARAESTHESIA [None]
